FAERS Safety Report 15010217 (Version 1)
Quarter: 2018Q2

REPORT INFORMATION
  Report Type: Report from Study
  Country: ES (occurrence: ES)
  Receive Date: 20180614
  Receipt Date: 20180614
  Transmission Date: 20180711
  Serious: Yes (Other)
  Sender: FDA-Public Use
  Company Number: ES-ROCHE-2137715

PATIENT

DRUGS (3)
  1. TRASTUZUMAB. [Suspect]
     Active Substance: TRASTUZUMAB
     Indication: INVASIVE DUCTAL BREAST CARCINOMA
     Route: 065
  2. DOCETAXEL. [Suspect]
     Active Substance: DOCETAXEL
     Indication: INVASIVE DUCTAL BREAST CARCINOMA
     Route: 065
  3. PACLITAXEL. [Suspect]
     Active Substance: PACLITAXEL
     Indication: INVASIVE DUCTAL BREAST CARCINOMA
     Route: 065

REACTIONS (18)
  - Neutropenia [Unknown]
  - Mucosal inflammation [Unknown]
  - Bone pain [Unknown]
  - Vomiting [Unknown]
  - Alanine aminotransferase increased [Unknown]
  - Chemical eye injury [Unknown]
  - Leukopenia [Unknown]
  - Diarrhoea [Unknown]
  - Urinary tract infection [Unknown]
  - Tongue coated [Unknown]
  - Myalgia [Unknown]
  - Anaemia [Unknown]
  - Lymphopenia [Unknown]
  - Asthenia [Unknown]
  - Constipation [Unknown]
  - Malaise [Unknown]
  - Neurotoxicity [Unknown]
  - Alopecia [Unknown]
